FAERS Safety Report 5755379-5 (Version None)
Quarter: 2008Q2

REPORT INFORMATION
  Report Type: 
  Country: None (occurrence: None)
  Receive Date: 20080602
  Receipt Date: 20080523
  Transmission Date: 20081010
  Serious: Yes (Life-Threatening, Hospitalization)
  Sender: FDA-Public Use
  Company Number: GB-ROCHE-558432

PATIENT
  Sex: Female
  Weight: 69.7 kg

DRUGS (15)
  1. ORLISTAT [Suspect]
     Indication: OBESITY
     Route: 048
     Dates: start: 20071106
  2. PROPANOL [Suspect]
     Indication: DRUG USE FOR UNKNOWN INDICATION
     Dosage: OVERDOSED IN THIS MEDICATION AND SUFFERED SEVERE SIDE EFFECTS
     Route: 065
     Dates: start: 20080417
  3. PROPANOL [Suspect]
     Route: 065
     Dates: start: 20080101
  4. OXYBUTYNIN CHLORIDE [Concomitant]
     Dosage: MODIFIED RELEASE TABLET, REPLACES SOLIFENACIN
  5. MEBEVERINE HYDROCHLORIDE [Concomitant]
     Dosage: SUGAR FREE LIQUID
  6. DIHYDROCODEINE [Concomitant]
     Dosage: ONE OR TWO TABLETS UP TO FOUR TIMES DAILY
  7. ZOPICLONE [Concomitant]
     Dosage: TAKE TWO AT NIGHT
  8. LANSOPRAZOLE [Concomitant]
     Dosage: CAPSULES OF ENTERIC COATED GRANULES
  9. SENNA [Concomitant]
  10. FLUOXETINE [Concomitant]
  11. HYDROCORTISONE [Concomitant]
     Dosage: AS DIRECTED
  12. BETAMETHASONE VALERATE [Concomitant]
     Dosage: MOUSSE
  13. KETOCONAZOLE [Concomitant]
     Dosage: SHAMPOO, TO USE DAILY
  14. CETIRIZINE HCL [Concomitant]
  15. ALBUTEROL [Concomitant]
     Dosage: CFC FREE INHALER.  STRENGTH: 100 MICROGRAMS PER INHALATION.  DOSAGE: INHALE 2 DOSES AS NEEDED

REACTIONS (3)
  - ADVERSE EVENT [None]
  - MYOCARDIAL ISCHAEMIA [None]
  - OVERDOSE [None]
